FAERS Safety Report 5080742-8 (Version None)
Quarter: 2006Q3

REPORT INFORMATION
  Report Type: 
  Country: None (occurrence: None)
  Receive Date: 20060809
  Receipt Date: 20060728
  Transmission Date: 20061208
  Serious: Yes (Hospitalization)
  Sender: FDA-Public Use
  Company Number: 2006093346

PATIENT
  Sex: Female

DRUGS (1)
  1. PREPIDIL [Suspect]
     Indication: LABOUR INDUCTION
     Dosage: 2.5 ML (2.5 ML, DAILY), VAGINAL
     Route: 067
     Dates: start: 20060725, end: 20060726

REACTIONS (7)
  - CAESAREAN SECTION [None]
  - DISSEMINATED INTRAVASCULAR COAGULATION [None]
  - DRUG EXPOSURE DURING PREGNANCY [None]
  - DYSPNOEA [None]
  - FOETAL DISTRESS SYNDROME [None]
  - GENERAL PHYSICAL CONDITION ABNORMAL [None]
  - PROCEDURAL COMPLICATION [None]
